FAERS Safety Report 13263160 (Version 1)
Quarter: 2017Q1

REPORT INFORMATION
  Report Type: Report from Study
  Country: US (occurrence: US)
  Receive Date: 20170223
  Receipt Date: 20170223
  Transmission Date: 20170428
  Serious: Yes (Hospitalization, Other)
  Sender: FDA-Public Use
  Company Number: US-ROCHE-1893681

PATIENT

DRUGS (5)
  1. RITUXIMAB [Suspect]
     Active Substance: RITUXIMAB
     Indication: WARM TYPE HAEMOLYTIC ANAEMIA
     Dosage: DAY 1
     Route: 042
  2. SIROLIMUS. [Suspect]
     Active Substance: SIROLIMUS
     Indication: WARM TYPE HAEMOLYTIC ANAEMIA
     Route: 065
  3. DEXAMETHASONE. [Suspect]
     Active Substance: DEXAMETHASONE
     Indication: WARM TYPE HAEMOLYTIC ANAEMIA
     Dosage: ORAL / INTRAVENOUS: DAY 1- DAY 7
     Route: 065
  4. MYCOPHENOLATE MOFETIL. [Suspect]
     Active Substance: MYCOPHENOLATE MOFETIL
     Indication: WARM TYPE HAEMOLYTIC ANAEMIA
     Route: 065
  5. CYCLOPHOSPHAMIDE. [Suspect]
     Active Substance: CYCLOPHOSPHAMIDE
     Indication: WARM TYPE HAEMOLYTIC ANAEMIA
     Dosage: DAY 1 OR DAY 2
     Route: 065

REACTIONS (12)
  - Cellulitis [Unknown]
  - Alopecia [Unknown]
  - Viral infection [Unknown]
  - Hypersensitivity [Unknown]
  - Gastrointestinal disorder [Unknown]
  - Headache [Unknown]
  - Influenza like illness [Unknown]
  - Thrombocytopenia [Unknown]
  - Aplastic anaemia [Unknown]
  - Syncope [Unknown]
  - Oral pain [Unknown]
  - Dysphagia [Unknown]
